FAERS Safety Report 11793948 (Version 1)
Quarter: 2015Q4

REPORT INFORMATION
  Report Type: Spontaneous
  Country: US (occurrence: US)
  Receive Date: 20151202
  Receipt Date: 20151202
  Transmission Date: 20160305
  Serious: No
  Sender: FDA-Public Use
  Company Number: US-WARNER CHILCOTT, LLC-1044908

PATIENT
  Sex: Female

DRUGS (1)
  1. LO LOESTRIN FE [Suspect]
     Active Substance: ETHINYL ESTRADIOL\NORETHINDRONE ACETATE
     Route: 048
     Dates: start: 20141225

REACTIONS (5)
  - Alopecia [Unknown]
  - Irritability [Unknown]
  - Depressed mood [Unknown]
  - Drug dose omission [Unknown]
  - Mood altered [Unknown]

NARRATIVE: CASE EVENT DATE: 201412
